FAERS Safety Report 8401900-8 (Version None)
Quarter: 2012Q2

REPORT INFORMATION
  Report Type: 
  Country: None (occurrence: None)
  Receive Date: 20120529
  Receipt Date: 20120517
  Transmission Date: 20120825
  Serious: Yes (Other)
  Sender: FDA-Public Use
  Company Number: 1291277

PATIENT
  Age: 4 Year
  Sex: Female
  Weight: 25 kg

DRUGS (4)
  1. KETAMINE HCL [Suspect]
     Dosage: 100MG, ONCE, INTRAMUSCULAR
     Route: 030
  2. ATROPINE SULFATE [Suspect]
     Dosage: 0.25MG, ONCE, INTRAMUSCULAR
     Route: 030
  3. IBUPROFEN (ADVIL) [Concomitant]
  4. TYLENOL (CAPLET) [Concomitant]

REACTIONS (1)
  - APNOEA [None]
